FAERS Safety Report 4827319-4 (Version None)
Quarter: 2005Q4

REPORT INFORMATION
  Report Type: 
  Country: None (occurrence: None)
  Receive Date: 20051110
  Receipt Date: 20051028
  Transmission Date: 20060501
  Serious: Yes (Life-Threatening)
  Sender: FDA-Public Use
  Company Number: PHRM2005FR02736

PATIENT
  Age: 76 Year
  Sex: Female
  Weight: 65.0005 kg

DRUGS (6)
  1. VISUDYNE [Suspect]
     Indication: MACULAR DEGENERATION
     Dates: start: 20050915, end: 20050915
  2. VISUDYNE [Suspect]
     Indication: MACULAR DEGENERATION
     Dates: start: 20030911, end: 20030911
  3. VISUDYNE [Suspect]
     Indication: MACULAR DEGENERATION
  4. VOLTAREN [Concomitant]
  5. DI-ANTALVIC [Concomitant]
  6. DOLIPRANE [Concomitant]

REACTIONS (5)
  - C-REACTIVE PROTEIN INCREASED [None]
  - FATIGUE [None]
  - MEAN CELL VOLUME DECREASED [None]
  - POLYCYTHAEMIA [None]
  - RED BLOOD CELL SEDIMENTATION RATE DECREASED [None]
